FAERS Safety Report 14195817 (Version 1)
Quarter: 2017Q4

REPORT INFORMATION
  Report Type: Spontaneous
  Country: US (occurrence: US)
  Receive Date: 20171116
  Receipt Date: 20171116
  Transmission Date: 20180321
  Serious: No
  Sender: FDA-Public Use
  Company Number: US-ALLERGAN-1721871US

PATIENT
  Age: 50 Year
  Sex: Female
  Weight: 104.31 kg

DRUGS (2)
  1. RHOFADE [Suspect]
     Active Substance: OXYMETAZOLINE HYDROCHLORIDE
     Indication: ERYTHEMA
     Dosage: UNK
     Route: 061
     Dates: start: 2017
  2. TAZORAC [Suspect]
     Active Substance: TAZAROTENE
     Indication: ROSACEA
     Dosage: UNK
     Route: 061
     Dates: end: 2017

REACTIONS (1)
  - Application site rash [Recovered/Resolved]
